FAERS Safety Report 16454943 (Version 1)
Quarter: 2019Q2

REPORT INFORMATION
  Report Type: Spontaneous
  Country: US (occurrence: US)
  Receive Date: 20190619
  Receipt Date: 20190619
  Transmission Date: 20190711
  Serious: No
  Sender: FDA-Public Use
  Company Number: US-ROCHE-2204522

PATIENT
  Age: 69 Year
  Sex: Male
  Weight: 83.54 kg

DRUGS (1)
  1. ACTEMRA [Suspect]
     Active Substance: TOCILIZUMAB
     Indication: RHEUMATOID ARTHRITIS
     Route: 058
     Dates: start: 201703

REACTIONS (6)
  - Blister [Recovered/Resolved]
  - Pruritus [Not Recovered/Not Resolved]
  - Myalgia [Unknown]
  - Injection site swelling [Not Recovered/Not Resolved]
  - Toothache [Not Recovered/Not Resolved]
  - Injection site urticaria [Not Recovered/Not Resolved]

NARRATIVE: CASE EVENT DATE: 201809
